FAERS Safety Report 7160226-3 (Version None)
Quarter: 2010Q4

REPORT INFORMATION
  Report Type: 
  Country: None (occurrence: None)
  Receive Date: 20101214
  Receipt Date: 20091130
  Transmission Date: 20110411
  Serious: No
  Sender: FDA-Public Use
  Company Number: US-AMGEN-KDL377549

PATIENT

DRUGS (4)
  1. ENBREL [Suspect]
     Indication: RHEUMATOID ARTHRITIS
     Dosage: 50 MG, QWK
     Route: 058
     Dates: start: 20070601
  2. REMICADE [Suspect]
     Dosage: UNK UNK, UNK
  3. ABATACEPT (BRISTOL-MYERS SQUIBB) [Suspect]
  4. METHOTREXATE [Concomitant]

REACTIONS (2)
  - HEADACHE [None]
  - THERAPEUTIC RESPONSE DECREASED [None]
